FAERS Safety Report 9487392 (Version 2)
Quarter: 2013Q3

REPORT INFORMATION
  Report Type: Spontaneous
  Country: US (occurrence: US)
  Receive Date: 20130725
  Receipt Date: 20130725
  Transmission Date: 20140515
  Serious: Yes (Hospitalization)
  Sender: FDA-Public Use
  Company Number: US-GLAXOSMITHKLINE-A0733437A

PATIENT
  Age: 56 Year
  Sex: Female
  Weight: 102.3 kg

DRUGS (15)
  1. AVANDIA [Suspect]
     Indication: TYPE 2 DIABETES MELLITUS
     Dosage: 4MG PER DAY
     Route: 048
     Dates: end: 20061107
  2. CYMBALTA [Concomitant]
  3. HYDROXYZINE HYDROCHLORIDE [Concomitant]
  4. LORAZEPAM [Concomitant]
  5. LEVOXYL [Concomitant]
  6. TRAZODONE HCL [Concomitant]
  7. METHOTREXATE [Concomitant]
  8. BACTRIM DS [Concomitant]
  9. CORTISPORIN [Concomitant]
  10. PREDNISONE [Concomitant]
  11. ENBREL [Concomitant]
  12. ABILIFY [Concomitant]
  13. ALBUTEROL [Concomitant]
  14. PRILOSEC [Concomitant]
  15. CELEBREX [Concomitant]

REACTIONS (2)
  - Cardiac failure congestive [Unknown]
  - Fracture [Unknown]
